FAERS Safety Report 16186796 (Version 1)
Quarter: 2019Q2

REPORT INFORMATION
  Report Type: Other
  Country: US (occurrence: US)
  Receive Date: 20190411
  Receipt Date: 20190411
  Transmission Date: 20190711
  Serious: Yes (Hospitalization, Other)
  Sender: FDA-Public Use
  Company Number: US-LEADING PHARMA, LLC-2065709

PATIENT
  Age: 22 Year
  Sex: Male

DRUGS (1)
  1. BENZTROPINE MESYLATE. [Suspect]
     Active Substance: BENZTROPINE MESYLATE
     Indication: ANTICHOLINERGIC SYNDROME
     Route: 042

REACTIONS (4)
  - Malignant catatonia [Not Recovered/Not Resolved]
  - Urinary tract infection [Unknown]
  - Catatonia [Not Recovered/Not Resolved]
  - Neuroleptic malignant syndrome [Not Recovered/Not Resolved]
